FAERS Safety Report 5110936-4 (Version None)
Quarter: 2006Q3

REPORT INFORMATION
  Report Type: 
  Country: None (occurrence: None)
  Receive Date: 20060922
  Receipt Date: 20060918
  Transmission Date: 20061208
  Serious: Yes (Life-Threatening, Other)
  Sender: FDA-Public Use
  Company Number: US-JNJFOC-20060904587

PATIENT
  Sex: Male

DRUGS (5)
  1. REMICADE [Suspect]
     Indication: COLITIS
     Dosage: SINGLE INFUSION
     Route: 042
  2. AZATHIOPRINE [Concomitant]
     Indication: COLITIS
     Dosage: 100 TO 150 MG/DAY
  3. ASACOL [Concomitant]
     Indication: COLITIS
  4. LOW MOLECULAR WEIGHT HEPARIN [Concomitant]
     Indication: INFERIOR VENA CAVAL OCCLUSION
  5. LOW MOLECULAR WEIGHT HEPARIN [Concomitant]
     Indication: ANTIPHOSPHOLIPID SYNDROME

REACTIONS (3)
  - INTRACRANIAL PRESSURE INCREASED [None]
  - NUCLEAR MAGNETIC RESONANCE IMAGING BRAIN ABNORMAL [None]
  - T-CELL LYMPHOMA [None]
